FAERS Safety Report 10192593 (Version 2)
Quarter: 2014Q2

REPORT INFORMATION
  Report Type: Spontaneous
  Country: US (occurrence: US)
  Receive Date: 20140523
  Receipt Date: 20140610
  Transmission Date: 20141212
  Serious: Yes (Death)
  Sender: FDA-Public Use
  Company Number: US-PFIZER INC-2014139162

PATIENT
  Age: 61 Year
  Sex: Male
  Weight: 91.61 kg

DRUGS (17)
  1. INLYTA [Suspect]
     Indication: RENAL CANCER
     Dosage: 5 MG, TWO TIMES A DAY
     Dates: start: 20140410
  2. ASPIR-81 [Concomitant]
     Dosage: UNK
  3. ATORVASTATIN CALCIUM [Concomitant]
     Dosage: UNK
  4. CENTRUM SILVER [Concomitant]
     Dosage: UNK
  5. CLONAZEPAM [Concomitant]
     Dosage: UNK
  6. IPRATROPIUM BROMIDE [Concomitant]
     Dosage: UNK
  7. KLOR CON M20 [Concomitant]
     Dosage: UNK
  8. OXYCONTIN [Concomitant]
     Dosage: UNK
  9. PANTOPRAZOLE [Concomitant]
     Dosage: UNK
  10. SERTRALINE [Concomitant]
     Dosage: UNK
  11. METOPROLOL [Concomitant]
     Dosage: UNK
  12. SYMBICORT [Concomitant]
     Dosage: UNK
  13. MIDODRINE [Concomitant]
     Dosage: UNK
  14. TYLENOL [Concomitant]
     Dosage: UNK
  15. SENNA [Concomitant]
     Indication: CONSTIPATION
     Dosage: UNK
  16. LEVALBUTEROL [Concomitant]
     Dosage: UNK
  17. KLOR-CON [Concomitant]

REACTIONS (5)
  - Fall [Fatal]
  - Skull fracture [Fatal]
  - Haemorrhage intracranial [Fatal]
  - Hepatic enzyme abnormal [Unknown]
  - Blood glucose increased [Unknown]
